FAERS Safety Report 9584123 (Version 1)
Quarter: 2013Q4

REPORT INFORMATION
  Report Type: Spontaneous
  Country: US (occurrence: US)
  Receive Date: 20131002
  Receipt Date: 20131002
  Transmission Date: 20140711
  Serious: No
  Sender: FDA-Public Use
  Company Number: US-AMGEN-USASP2013051177

PATIENT
  Age: 64 Year
  Sex: Female

DRUGS (4)
  1. ENBREL [Suspect]
     Indication: PSORIASIS
     Dosage: 50 MG, QWK
     Route: 065
     Dates: start: 20000115, end: 201305
  2. ENBREL [Suspect]
     Indication: PSORIATIC ARTHROPATHY
  3. CELEBREX [Concomitant]
     Dosage: UNK
  4. LORTAB                             /00607101/ [Concomitant]
     Dosage: UNK

REACTIONS (2)
  - Pain in extremity [Not Recovered/Not Resolved]
  - Psoriasis [Not Recovered/Not Resolved]
